FAERS Safety Report 15815329 (Version 1)
Quarter: 2019Q1

REPORT INFORMATION
  Report Type: Spontaneous
  Country: BG (occurrence: BG)
  Receive Date: 20190112
  Receipt Date: 20190112
  Transmission Date: 20190417
  Serious: Yes (Other)
  Sender: FDA-Public Use
  Company Number: BG-BAYER-2019-004024

PATIENT
  Age: 50 Year
  Sex: Male

DRUGS (9)
  1. CABAZITAXEL [Suspect]
     Active Substance: CABAZITAXEL
     Indication: PROSTATE CANCER
     Dosage: UNK
     Dates: end: 20170126
  2. DOCETAXEL. [Suspect]
     Active Substance: DOCETAXEL
     Indication: TUMOUR MARKER INCREASED
     Route: 042
  3. DOCETAXEL. [Suspect]
     Active Substance: DOCETAXEL
     Indication: PROSTATE CANCER
  4. CABAZITAXEL [Suspect]
     Active Substance: CABAZITAXEL
     Indication: PROSTATE CANCER
     Dosage: UNK
     Dates: start: 20160519, end: 20160519
  5. LEUPRORELIN [Concomitant]
     Active Substance: LEUPROLIDE ACETATE
     Indication: PROSTATE CANCER
     Dates: start: 20141029, end: 20141029
  6. RADIUM-223 DICHLORIDE [Suspect]
     Active Substance: RADIUM RA-223 DICHLORIDE
     Indication: TUMOUR MARKER INCREASED
     Dosage: 4.4 MBQ / APPLICATION - 17.6 MBQ IN FOUR COURSES
     Route: 042
     Dates: start: 20170418, end: 20170712
  7. DENOSUMAB [Concomitant]
     Active Substance: DENOSUMAB
     Indication: PROSTATE CANCER
     Dates: start: 20141029, end: 20141029
  8. ABIRATERONE ACETATE. [Concomitant]
     Active Substance: ABIRATERONE ACETATE
     Dosage: 1000 MG, QD
     Dates: start: 201705
  9. BIKALUTAMID ACCORD [Concomitant]
     Indication: PROSTATE CANCER
     Dates: start: 20141029, end: 20141029

REACTIONS (3)
  - Metastases to soft tissue [Unknown]
  - Drug ineffective [Unknown]
  - Drug resistance [Unknown]
